FAERS Safety Report 4513380-3 (Version None)
Quarter: 2004Q4

REPORT INFORMATION
  Report Type: 
  Country: None (occurrence: None)
  Receive Date: 20041130
  Receipt Date: 20040901
  Transmission Date: 20050328
  Serious: Yes (Other)
  Sender: FDA-Public Use
  Company Number: US-BRISTOL-MYERS SQUIBB COMPANY-12689220

PATIENT
  Age: 61 Year
  Sex: Male
  Weight: 81 kg

DRUGS (11)
  1. ERBITUX [Suspect]
     Indication: RECTAL CANCER METASTATIC
     Dosage: LOADING DOSE(400 MG/M2),INFUSION STOPPED,RE-STARTED,THEN STOPPED,RE-CHALLENGED
     Route: 042
     Dates: start: 20040827, end: 20040827
  2. ATROPINE [Concomitant]
     Indication: PREMEDICATION
     Route: 042
     Dates: start: 20040827, end: 20040827
  3. ANZEMET [Concomitant]
     Indication: PREMEDICATION
     Route: 042
     Dates: start: 20040827, end: 20040827
  4. DECADRON [Concomitant]
     Indication: PREMEDICATION
     Dosage: 10 MG + 20 MG
     Route: 042
     Dates: start: 20040827, end: 20040827
  5. DURAGESIC [Concomitant]
     Route: 062
  6. KLONOPIN [Concomitant]
  7. PERCOCET [Concomitant]
     Dosage: 5 MG/325 MG
  8. BENADRYL [Concomitant]
  9. ZANTAC [Concomitant]
  10. CAMPTOSAR [Concomitant]
  11. ARANESP [Concomitant]

REACTIONS (5)
  - EYE PRURITUS [None]
  - EYE REDNESS [None]
  - HYPOTENSION [None]
  - PRURITUS [None]
  - URTICARIA GENERALISED [None]
